FAERS Safety Report 20428597 (Version 1)
Quarter: 2022Q1

REPORT INFORMATION
  Report Type: Spontaneous
  Country: SO (occurrence: SO)
  Receive Date: 20220204
  Receipt Date: 20220204
  Transmission Date: 20220424
  Serious: Yes (Hospitalization, Other)
  Sender: FDA-Public Use
  Company Number: SO-LUPIN PHARMACEUTICALS INC.-2022-01476

PATIENT
  Age: 61 Year
  Sex: Male

DRUGS (1)
  1. METOCLOPRAMIDE [Suspect]
     Active Substance: METOCLOPRAMIDE
     Indication: Gastritis
     Dosage: 10 MG, TID
     Route: 065

REACTIONS (1)
  - Dystonia [Recovered/Resolved]
